FAERS Safety Report 16495625 (Version 1)
Quarter: 2019Q2

REPORT INFORMATION
  Report Type: Spontaneous
  Country: US (occurrence: US)
  Receive Date: 20190628
  Receipt Date: 20190628
  Transmission Date: 20190711
  Serious: Yes (Hospitalization)
  Sender: FDA-Public Use
  Company Number: US-SHIRE-US201920550

PATIENT
  Sex: Male

DRUGS (1)
  1. GATTEX [Suspect]
     Active Substance: TEDUGLUTIDE\WATER
     Indication: PRODUCT USED FOR UNKNOWN INDICATION
     Dosage: 0.335 UNKNOWN UNITS
     Route: 058
     Dates: start: 20160302

REACTIONS (3)
  - Product dose omission [Unknown]
  - Obstruction [Recovered/Resolved]
  - Weight decreased [Not Recovered/Not Resolved]
